FAERS Safety Report 17339842 (Version 2)
Quarter: 2020Q1

REPORT INFORMATION
  Report Type: Spontaneous
  Country: CH (occurrence: CH)
  Receive Date: 20200129
  Receipt Date: 20200131
  Transmission Date: 20200409
  Serious: Yes (Life-Threatening, Hospitalization, Disabling)
  Sender: FDA-Public Use
  Company Number: CH-MYLANLABS-2020M1011033

PATIENT
  Age: 27 Year
  Sex: Female

DRUGS (5)
  1. RELVAR ELLIPTA                     /08236201/ [Suspect]
     Active Substance: FLUTICASONE FUROATE\VILANTEROL TRIFENATATE
     Indication: ASTHMA
     Dosage: 184 MICROGRAM, QD
     Route: 055
     Dates: start: 2017
  2. NUVARING [Suspect]
     Active Substance: ETHINYL ESTRADIOL\ETONOGESTREL
     Indication: CONTRACEPTION
     Dosage: NUVA RING VAGINAL SEIT 12/2018.. STOP ENDE 2019. -~ZUVOR CA 2016/2017, NICHT 11/2018
     Route: 067
     Dates: start: 201812
  3. MG 5-ORALEFF [Concomitant]
     Indication: MIGRAINE PROPHYLAXIS
     Dosage: 7.5 MILLIMOLE, QD
     Route: 048
     Dates: start: 201812
  4. MONTELUKAST [Suspect]
     Active Substance: MONTELUKAST SODIUM
     Indication: ASTHMA
     Dosage: 10 MILLIGRAM, QD
     Route: 048
     Dates: start: 2017
  5. BRUFEN RETARD [Suspect]
     Active Substance: IBUPROFEN
     Indication: PRODUCT USED FOR UNKNOWN INDICATION
     Dosage: 2 X 800 MG PER DAY
     Dates: end: 20181127

REACTIONS (4)
  - Basal ganglia haemorrhage [Not Recovered/Not Resolved]
  - Migraine [Unknown]
  - Contraindicated product administered [Not Recovered/Not Resolved]
  - Hypertension [Unknown]

NARRATIVE: CASE EVENT DATE: 201811
